FAERS Safety Report 16119742 (Version 3)
Quarter: 2019Q2

REPORT INFORMATION
  Report Type: Report from Study
  Country: US (occurrence: US)
  Receive Date: 20190326
  Receipt Date: 20190603
  Transmission Date: 20190711
  Serious: Yes (Hospitalization)
  Sender: FDA-Public Use
  Company Number: US-ACTELION-A-NJ2018-168824

PATIENT
  Age: 78 Year
  Sex: Male
  Weight: 72.56 kg

DRUGS (3)
  1. DILTIAZEM. [Concomitant]
     Active Substance: DILTIAZEM
  2. TRACLEER [Suspect]
     Active Substance: BOSENTAN
     Indication: PULMONARY ARTERIAL HYPERTENSION
     Dosage: 125 MG, BID
     Route: 048
  3. REVATIO [Concomitant]
     Active Substance: SILDENAFIL CITRATE

REACTIONS (5)
  - Cystitis [Unknown]
  - Fluid retention [Unknown]
  - Cellulitis [Unknown]
  - Prostatic disorder [Unknown]
  - Scrotal oedema [Recovered/Resolved]

NARRATIVE: CASE EVENT DATE: 20190312
